FAERS Safety Report 19472743 (Version 1)
Quarter: 2021Q2

REPORT INFORMATION
  Report Type: Spontaneous
  Country: IN (occurrence: IN)
  Receive Date: 20210629
  Receipt Date: 20210629
  Transmission Date: 20210717
  Serious: Yes (Other)
  Sender: FDA-Public Use
  Company Number: IN-MYLANLABS-2021M1037803

PATIENT
  Age: 3 Year
  Sex: Female

DRUGS (2)
  1. TOPOTECAN [Suspect]
     Active Substance: TOPOTECAN HYDROCHLORIDE
     Indication: RETINOBLASTOMA
     Dosage: DOSE: 1MG IN 0.1ML (FIRST INJECTION)
  2. TOPOTECAN [Suspect]
     Active Substance: TOPOTECAN HYDROCHLORIDE
     Dosage: DOSE: 20UG IN 0.1ML (SECOND INJECTION)

REACTIONS (4)
  - Erythema multiforme [Recovering/Resolving]
  - Hypersensitivity [Recovering/Resolving]
  - Mouth ulceration [Recovering/Resolving]
  - Corneal epithelium defect [Recovering/Resolving]
